FAERS Safety Report 19350947 (Version 6)
Quarter: 2021Q2

REPORT INFORMATION
  Report Type: Report from Study
  Country: KR (occurrence: KR)
  Receive Date: 20210531
  Receipt Date: 20210622
  Transmission Date: 20210717
  Serious: Yes (Hospitalization, Other)
  Sender: FDA-Public Use
  Company Number: KR-GLAXOSMITHKLINE-KR2021114164

PATIENT
  Age: 52 Year
  Sex: Female
  Weight: 52.7 kg

DRUGS (29)
  1. BLINDED CISPLATIN [Suspect]
     Active Substance: CISPLATIN
     Indication: NON-SMALL CELL LUNG CANCER
     Dosage: DOSE AT CYCLE 1 ? DAY 1
     Dates: start: 20210513, end: 20210513
  2. BLINDED PEMETREXED [Suspect]
     Active Substance: PEMETREXED
     Indication: NON-SMALL CELL LUNG CANCER
     Dosage: DOSE AT CYCLE 1 ? DAY 1
     Route: 042
     Dates: start: 20210513, end: 20210513
  3. BLINDED PEMBROLIZUMAB [Suspect]
     Active Substance: PEMBROLIZUMAB
     Indication: NON-SMALL CELL LUNG CANCER
     Dosage: DOSE AT CYCLE 1 ? DAY 1
     Route: 042
     Dates: start: 20210513, end: 20210513
  4. PETHIDINE [Concomitant]
     Active Substance: MEPERIDINE
     Indication: PAIN
     Dosage: 1 AMPLE (FREQUENCY = AS NEEDED)
     Route: 042
     Dates: start: 20210527, end: 20210527
  5. BLINDED CARBOPLATIN (NON?GSK COMPARATOR) [Suspect]
     Active Substance: CARBOPLATIN
     Indication: NON-SMALL CELL LUNG CANCER
     Dosage: DOSE AT CYCLE 1 ? DAY 1
     Route: 042
     Dates: start: 20210513, end: 20210513
  6. METHYLPREDNISOLONE. [Concomitant]
     Active Substance: METHYLPREDNISOLONE
     Dosage: 0.4 DF (VIAL), QD
     Route: 042
     Dates: start: 20210531, end: 20210602
  7. AMBROXOL [Concomitant]
     Active Substance: AMBROXOL
     Indication: COUGH
     Dosage: 20 MG, TID
     Route: 048
     Dates: start: 20210513
  8. CODEINE [Concomitant]
     Active Substance: CODEINE
     Indication: COUGH
     Dosage: 20 MG, TID
     Route: 048
     Dates: start: 20210513
  9. METRONIDAZOLE. [Concomitant]
     Active Substance: METRONIDAZOLE
     Indication: INFECTION PROPHYLAXIS
     Dosage: 500 MG, TID
     Route: 042
     Dates: start: 20210526, end: 20210528
  10. BLINDED DOSTARLIMAB [Suspect]
     Active Substance: DOSTARLIMAB
     Indication: NON-SMALL CELL LUNG CANCER
     Dosage: DOSE AT CYCLE 1 ? DAY 1
     Dates: start: 20210513, end: 20210513
  11. BLINDED PEMETREXED [Suspect]
     Active Substance: PEMETREXED
     Indication: NON-SMALL CELL LUNG CANCER
     Dosage: DOSE AT CYCLE 1 ? DAY 1
     Dates: start: 20210513, end: 20210513
  12. BLINDED DOSTARLIMAB [Suspect]
     Active Substance: DOSTARLIMAB
     Indication: NON-SMALL CELL LUNG CANCER
     Dosage: DOSE AT CYCLE 1 ? DAY 1
     Route: 042
     Dates: start: 20210513, end: 20210513
  13. BLINDED PEMBROLIZUMAB [Suspect]
     Active Substance: PEMBROLIZUMAB
     Indication: NON-SMALL CELL LUNG CANCER
     Dosage: DOSE AT CYCLE 1 ? DAY 1
     Route: 042
     Dates: start: 20210513, end: 20210513
  14. SULFAMETHOXAZOLE + TRIMETHOPRIM [Concomitant]
     Active Substance: SULFAMETHOXAZOLE\TRIMETHOPRIM
     Indication: PROPHYLAXIS
     Dosage: 1 TABLET (FREQUENCY = ONCE DAILY)
     Route: 048
     Dates: start: 20210601, end: 20210607
  15. BLINDED CARBOPLATIN (NON?GSK COMPARATOR) [Suspect]
     Active Substance: CARBOPLATIN
     Indication: NON-SMALL CELL LUNG CANCER
     Dosage: DOSE AT CYCLE 1 ? DAY 1
     Route: 042
     Dates: start: 20210513, end: 20210513
  16. BLINDED DOSTARLIMAB [Suspect]
     Active Substance: DOSTARLIMAB
     Indication: NON-SMALL CELL LUNG CANCER
     Dosage: DOSE AT CYCLE 1 ? DAY 1
     Route: 042
     Dates: start: 20210513, end: 20210513
  17. METHYLPREDNISOLONE. [Concomitant]
     Active Substance: METHYLPREDNISOLONE
     Indication: DYSPNOEA
     Dosage: 125 MG (FREQUENCY = ONCE DAILY)
     Route: 042
     Dates: start: 20210526, end: 20210530
  18. PETHIDINE [Concomitant]
     Active Substance: MEPERIDINE
     Dosage: 0.5 DF (AMPLE), PRN
     Route: 042
     Dates: start: 20210527, end: 20210602
  19. LANSOPRAZOLE. [Concomitant]
     Active Substance: LANSOPRAZOLE
     Indication: GASTRITIS PROPHYLAXIS
     Dosage: 15 MG (FREQUENCY = ONCE DAILY)
     Route: 048
     Dates: start: 20210526, end: 20210607
  20. BLINDED CARBOPLATIN (NON?GSK COMPARATOR) [Suspect]
     Active Substance: CARBOPLATIN
     Indication: NON-SMALL CELL LUNG CANCER
     Dosage: DOSE AT CYCLE 1 ? DAY 1
     Dates: start: 20210513, end: 20210513
  21. DEXAMETHASONE. [Concomitant]
     Active Substance: DEXAMETHASONE
     Indication: CHEMOTHERAPY SIDE EFFECT PROPHYLAXIS
     Dosage: 10 MG (FREQUENCY = ONCE DAILY)
     Route: 042
     Dates: start: 20210513
  22. BLINDED CISPLATIN [Suspect]
     Active Substance: CISPLATIN
     Indication: NON-SMALL CELL LUNG CANCER
     Dosage: DOSE AT CYCLE 1 ? DAY 1
     Route: 042
     Dates: start: 20210513, end: 20210513
  23. BLINDED CISPLATIN [Suspect]
     Active Substance: CISPLATIN
     Indication: NON-SMALL CELL LUNG CANCER
     Dosage: DOSE AT CYCLE 1 ? DAY 1
     Route: 042
     Dates: start: 20210513, end: 20210513
  24. BLINDED PEMETREXED [Suspect]
     Active Substance: PEMETREXED
     Indication: NON-SMALL CELL LUNG CANCER
     Dosage: DOSE AT CYCLE 1 ? DAY 1
     Route: 042
     Dates: start: 20210513, end: 20210513
  25. RAMOSETRON HYDROCHLORIDE [Concomitant]
     Active Substance: RAMOSETRON HYDROCHLORIDE
     Indication: CHEMOTHERAPY SIDE EFFECT PROPHYLAXIS
     Dosage: 0.3 MG (FREQUENCY = ONCE DAILY)
     Route: 042
     Dates: start: 20210513
  26. CAVID CHEWABLE [Concomitant]
     Indication: MINERAL SUPPLEMENTATION
     Dosage: 1 TABLET (FREQUENCY = ONCE DAILY)
     Route: 048
     Dates: start: 20210601, end: 20210607
  27. BLINDED PEMBROLIZUMAB [Suspect]
     Active Substance: PEMBROLIZUMAB
     Indication: NON-SMALL CELL LUNG CANCER
     Dosage: DOSE AT CYCLE 1 ? DAY 1
     Dates: start: 20210513, end: 20210513
  28. FOLIC ACID. [Concomitant]
     Active Substance: FOLIC ACID
     Indication: FOLATE DEFICIENCY
     Dosage: 1 MG (FREQUENCY = ONCE DAILY)
     Route: 048
     Dates: start: 20210415
  29. METOCLOPRAMIDE. [Concomitant]
     Active Substance: METOCLOPRAMIDE
     Indication: PROPHYLAXIS OF NAUSEA AND VOMITING
     Dosage: 10 MG (FREQUENCY = ONCE DAILY)
     Route: 042
     Dates: start: 20210528, end: 20210602

REACTIONS (1)
  - Alanine aminotransferase increased [Not Recovered/Not Resolved]

NARRATIVE: CASE EVENT DATE: 20210526
